FAERS Safety Report 23080980 (Version 1)
Quarter: 2023Q4

REPORT INFORMATION
  Report Type: Spontaneous
  Country: US (occurrence: US)
  Receive Date: 20231018
  Receipt Date: 20231018
  Transmission Date: 20240110
  Serious: Yes (Death, Other)
  Sender: FDA-Public Use
  Company Number: US-PFIZER INC-PV202300166903

PATIENT
  Age: 58 Year
  Sex: Female

DRUGS (2)
  1. ETOMIDATE [Suspect]
     Active Substance: ETOMIDATE
     Indication: Induction of anaesthesia
     Dosage: UNK
  2. NOREPINEPHRINE BITARTRATE [Suspect]
     Active Substance: NOREPINEPHRINE BITARTRATE
     Dosage: UNK

REACTIONS (1)
  - Drug ineffective [Fatal]
